FAERS Safety Report 5846267-4 (Version None)
Quarter: 2008Q3

REPORT INFORMATION
  Report Type: 
  Country: None (occurrence: None)
  Receive Date: 20080813
  Receipt Date: 20080731
  Transmission Date: 20090109
  Serious: Yes (Other)
  Sender: FDA-Public Use
  Company Number: 2008AL009201

PATIENT
  Sex: Female

DRUGS (1)
  1. FLUOXETINE HYDROCHLORIDE [Suspect]
     Indication: ANXIETY
     Dosage: 20 MG; PO
     Route: 048
     Dates: start: 20080110

REACTIONS (3)
  - BRUXISM [None]
  - CONDITION AGGRAVATED [None]
  - TOOTH DISORDER [None]
